FAERS Safety Report 16302749 (Version 2)
Quarter: 2019Q3

REPORT INFORMATION
  Report Type: Report from Study
  Country: US (occurrence: US)
  Receive Date: 20190513
  Receipt Date: 20190708
  Transmission Date: 20191004
  Serious: Yes (Other)
  Sender: FDA-Public Use
  Company Number: US-SA-2019SA106631

PATIENT
  Age: 46 Year
  Sex: Male

DRUGS (1)
  1. AGALSIDASE BETA [Suspect]
     Active Substance: AGALSIDASE BETA
     Indication: FABRY^S DISEASE
     Dosage: 65, Q2 (UNITS NOT KNOWN)
     Route: 041
     Dates: start: 20180225

REACTIONS (5)
  - Deafness unilateral [Not Recovered/Not Resolved]
  - Pruritus [Recovered/Resolved]
  - Ear pain [Recovered/Resolved]
  - Visual impairment [Not Recovered/Not Resolved]
  - Headache [Recovered/Resolved]

NARRATIVE: CASE EVENT DATE: 20190429
